FAERS Safety Report 10147384 (Version 1)
Quarter: 2014Q2

REPORT INFORMATION
  Report Type: Spontaneous
  Country: US (occurrence: US)
  Receive Date: 20140501
  Receipt Date: 20140501
  Transmission Date: 20141212
  Serious: Yes (Other)
  Sender: FDA-Public Use
  Company Number: US-FRI-1000066834

PATIENT
  Age: 62 Year
  Sex: Male
  Weight: 154 kg

DRUGS (5)
  1. ARMOUR THYROID [Suspect]
     Dosage: ALTERNATING 120MG AND 180MG EVERY OTHER DAY
     Route: 048
     Dates: start: 2008, end: 201302
  2. ARMOUR THYROID [Suspect]
     Dosage: 180MG
     Route: 048
     Dates: start: 201302
  3. RANITIDINE [Concomitant]
     Indication: HYPERSENSITIVITY
  4. VITAMIN D [Concomitant]
  5. VITAMIN B [Concomitant]

REACTIONS (5)
  - Cholecystectomy [Unknown]
  - Blood thyroid stimulating hormone increased [Not Recovered/Not Resolved]
  - Fatigue [Not Recovered/Not Resolved]
  - Weight increased [Not Recovered/Not Resolved]
  - Heart rate irregular [Recovered/Resolved]
